FAERS Safety Report 4451031-7 (Version None)
Quarter: 2004Q3

REPORT INFORMATION
  Report Type: 
  Country: None (occurrence: None)
  Receive Date: 20040916
  Receipt Date: 20040728
  Transmission Date: 20050211
  Serious: No
  Sender: FDA-Public Use
  Company Number: US-BRISTOL-MYERS SQUIBB COMPANY-12654406

PATIENT
  Sex: Female

DRUGS (2)
  1. STADOL [Suspect]
     Indication: MIGRAINE
  2. EXCEDRIN (MIGRAINE) [Suspect]
     Indication: MIGRAINE

REACTIONS (1)
  - DRUG INEFFECTIVE [None]
